FAERS Safety Report 9677975 (Version 2)
Quarter: 2014Q2

REPORT INFORMATION
  Report Type: Spontaneous
  Country: US (occurrence: US)
  Receive Date: 20131108
  Receipt Date: 20140527
  Transmission Date: 20141212
  Serious: Yes (Hospitalization)
  Sender: FDA-Public Use
  Company Number: US-BAYER-2013-134658

PATIENT
  Age: 27 Year
  Sex: Female

DRUGS (24)
  1. YASMIN [Suspect]
     Indication: ACNE
  2. YAZ [Suspect]
     Indication: ACNE
  3. OCELLA [Suspect]
  4. XANAX [Concomitant]
     Dosage: 0.5 MG, UNK
  5. ALPRAZOLAM [Concomitant]
     Dosage: 0.5 MG, UNK
  6. AVELOX [Concomitant]
  7. DIFLUCAN [Concomitant]
     Dosage: 150 MG, UNK
     Dates: start: 20080501
  8. KENALOG [Concomitant]
     Indication: KELOID SCAR
     Dosage: 40 MG, UNK
     Route: 023
     Dates: start: 20080501
  9. INDERAL LA [Concomitant]
     Dosage: 120 MG, DAILY
     Route: 048
  10. TAPAZOLE [Concomitant]
     Dosage: 30 MG, UNK
     Route: 048
  11. PREDNISONE [Concomitant]
  12. METHYLPREDNISOLONE [Concomitant]
  13. FLUCONAZOLE [Concomitant]
  14. PROPYLTHIOURACIL [Concomitant]
  15. VALPROIC ACID [Concomitant]
  16. SYNTHROID [Concomitant]
  17. DEPAKOTE [Concomitant]
  18. FERROUS SULFATE [Concomitant]
  19. KEPPRA [Concomitant]
  20. PRANDIN [Concomitant]
  21. CRESTOR [Concomitant]
  22. TRAMADOL [Concomitant]
  23. NEXIUM [Concomitant]
  24. COLACE [Concomitant]

REACTIONS (4)
  - Cerebrovascular accident [None]
  - Injury [None]
  - Pain [None]
  - Pain [None]
